FAERS Safety Report 12911644 (Version 1)
Quarter: 2016Q4

REPORT INFORMATION
  Report Type: Spontaneous
  Country: CH (occurrence: CH)
  Receive Date: 20161104
  Receipt Date: 20161104
  Transmission Date: 20170207
  Serious: Yes (Death, Hospitalization, Other)
  Sender: FDA-Public Use
  Company Number: CH-PURDUE-GBR-2016-0041367

PATIENT
  Age: 70 Year
  Sex: Female

DRUGS (4)
  1. CO-DIOVAN [Concomitant]
     Active Substance: HYDROCHLOROTHIAZIDE\VALSARTAN
     Indication: RENAL FAILURE
  2. MST [Suspect]
     Active Substance: MORPHINE SULFATE\NALTREXONE HYDROCHLORIDE
     Indication: METASTASES TO BONE
     Dosage: 10 MG, BID
     Route: 065
     Dates: start: 20150918
  3. CO-DIOVAN [Concomitant]
     Active Substance: HYDROCHLOROTHIAZIDE\VALSARTAN
     Indication: HYPERTENSION
  4. DAFALGAN [Concomitant]
     Active Substance: ACETAMINOPHEN

REACTIONS (9)
  - Condition aggravated [Unknown]
  - Vomiting [Unknown]
  - Pyrexia [Not Recovered/Not Resolved]
  - Neoplasm progression [Fatal]
  - Pancytopenia [Recovered/Resolved]
  - Nausea [Unknown]
  - Systemic lupus erythematosus [Unknown]
  - Transaminases increased [Unknown]
  - Renal failure [Not Recovered/Not Resolved]

NARRATIVE: CASE EVENT DATE: 20150920
